FAERS Safety Report 8349373-8 (Version None)
Quarter: 2012Q2

REPORT INFORMATION
  Report Type: 
  Country: None (occurrence: None)
  Receive Date: 20120508
  Receipt Date: 20120508
  Transmission Date: 20120825
  Serious: Yes (Hospitalization)
  Sender: FDA-Public Use
  Company Number: None

PATIENT
  Age: 47 Year
  Sex: Female
  Weight: 49.6 kg

DRUGS (1)
  1. FUROSEMIDE [Suspect]
     Dosage: MG PO
     Route: 048
     Dates: start: 20120410

REACTIONS (1)
  - HYPOKALAEMIA [None]
